FAERS Safety Report 4993187-3 (Version None)
Quarter: 2006Q1

REPORT INFORMATION
  Report Type: 
  Country: None (occurrence: None)
  Receive Date: 20060313
  Receipt Date: 20051108
  Transmission Date: 20060701
  Serious: No
  Sender: FDA-Public Use
  Company Number: 2005-BP-17985BP

PATIENT
  Age: 71 Year
  Sex: Female

DRUGS (4)
  1. SPIRIVA [Suspect]
     Indication: ASTHMA
     Dosage: 18 MCG (18 MCG,1 PUFF QD),IH
     Dates: start: 20050601
  2. SPIRIVA [Suspect]
     Indication: EMPHYSEMA
     Dosage: 18 MCG (18 MCG,1 PUFF QD),IH
     Dates: start: 20050601
  3. SYNTHROID [Concomitant]
  4. AMBIEN [Concomitant]

REACTIONS (1)
  - RASH GENERALISED [None]
